FAERS Safety Report 6437700-8 (Version None)
Quarter: 2009Q4

REPORT INFORMATION
  Report Type: 
  Country: None (occurrence: None)
  Receive Date: 20091112
  Receipt Date: 20091014
  Transmission Date: 20100525
  Serious: Yes (Death, Hospitalization, Other)
  Sender: FDA-Public Use
  Company Number: GB-SANOFI-AVENTIS-200921775GDDC

PATIENT
  Age: 63 Year
  Sex: Male

DRUGS (6)
  1. GLIBENCLAMIDE [Suspect]
  2. GLIBENCLAMIDE [Suspect]
  3. LEVOTHYROXINE SODIUM [Suspect]
     Indication: HYPOTHYROIDISM
  4. CLOZAPINE [Suspect]
     Indication: SCHIZOPHRENIA
  5. DOCUSATE SODIUM [Suspect]
     Indication: CONSTIPATION
  6. NO MENTION OF CONCOMITANT DRUG [Concomitant]

REACTIONS (6)
  - CIRCULATORY COLLAPSE [None]
  - CONSTIPATION [None]
  - LARGE INTESTINAL OBSTRUCTION [None]
  - MULTI-ORGAN FAILURE [None]
  - MYOCLONUS [None]
  - SALIVARY HYPERSECRETION [None]
